FAERS Safety Report 8767201 (Version 2)
Quarter: 2012Q4

REPORT INFORMATION
  Report Type: Report from Study
  Country: JP (occurrence: JP)
  Receive Date: 20120904
  Receipt Date: 20121012
  Transmission Date: 20130627
  Serious: No
  Sender: FDA-Public Use
  Company Number: JP-JNJFOC-20120812033

PATIENT
  Age: 44 Year
  Sex: Male

DRUGS (7)
  1. DUROTEP MT [Suspect]
     Indication: PAIN
     Route: 062
     Dates: start: 20100623, end: 20100903
  2. DUROTEP MT [Suspect]
     Indication: PAIN
     Route: 062
     Dates: start: 20100903, end: 20100929
  3. GABAPEN [Concomitant]
     Indication: PAIN
     Route: 048
  4. RIVOTRIL [Concomitant]
     Indication: PAIN
     Route: 048
  5. NOVAMIN [Concomitant]
     Indication: PROPHYLAXIS
     Route: 048
     Dates: start: 20100623, end: 20120901
  6. MAGNESIUM OXIDE [Concomitant]
     Indication: PROPHYLAXIS
     Route: 048
     Dates: start: 20100623, end: 20120901
  7. PURSENNID [Concomitant]
     Indication: PROPHYLAXIS
     Route: 048
     Dates: start: 20100623, end: 20120728

REACTIONS (6)
  - Malaise [Recovered/Resolved]
  - Wrong technique in drug usage process [Unknown]
  - Nausea [Recovered/Resolved]
  - Terminal insomnia [Recovered/Resolved]
  - Dizziness [Recovered/Resolved]
  - Wrong technique in drug usage process [Unknown]
